FAERS Safety Report 23103799 (Version 1)
Quarter: 2023Q4

REPORT INFORMATION
  Report Type: Spontaneous
  Country: US (occurrence: None)
  Receive Date: 20231022
  Receipt Date: 20231022
  Transmission Date: 20240109
  Serious: Yes (Hospitalization)
  Sender: FDA-Public Use
  Company Number: None

PATIENT
  Age: 56 Year
  Sex: Female

DRUGS (1)
  1. LURBINECTEDIN [Suspect]
     Active Substance: LURBINECTEDIN
     Dosage: FREQUENCY : ONCE;?
     Route: 042
     Dates: start: 20210526, end: 20210526

REACTIONS (4)
  - Liver function test increased [None]
  - Neutropenia [None]
  - Thrombocytopenia [None]
  - Laboratory test abnormal [None]

NARRATIVE: CASE EVENT DATE: 20210601
